FAERS Safety Report 5488438-5 (Version None)
Quarter: 2007Q4

REPORT INFORMATION
  Report Type: 
  Country: None (occurrence: None)
  Receive Date: 20071017
  Receipt Date: 20071008
  Transmission Date: 20080405
  Serious: Yes (Congenital Anomaly)
  Sender: FDA-Public Use
  Company Number: US-ROCHE-325156

PATIENT
  Sex: Male
  Weight: 2.6 kg

DRUGS (4)
  1. INVIRASE [Suspect]
     Indication: HIV INFECTION
     Dates: start: 20020523
  2. COMBIVIR [Suspect]
     Indication: HIV INFECTION
     Dates: start: 20020212
  3. KALETRA [Suspect]
     Indication: HIV INFECTION
     Dates: start: 20020212
  4. AZT [Suspect]
     Indication: HIV INFECTION
     Dates: start: 20020610, end: 20020620

REACTIONS (1)
  - CONGENITAL TOXOPLASMOSIS [None]
